FAERS Safety Report 10433365 (Version 1)
Quarter: 2014Q3

REPORT INFORMATION
  Report Type: Spontaneous
  Country: JP (occurrence: JP)
  Receive Date: 20140905
  Receipt Date: 20140905
  Transmission Date: 20150326
  Serious: Yes (Other)
  Sender: FDA-Public Use
  Company Number: PHHY2013JP161831

PATIENT
  Age: 65 Year
  Sex: Female
  Weight: 85 kg

DRUGS (2)
  1. GLIVEC [Suspect]
     Active Substance: IMATINIB MESYLATE
     Indication: CHRONIC MYELOID LEUKAEMIA
     Dosage: 600 MG, DAILY
     Dates: start: 20130811
  2. GLIVEC [Suspect]
     Active Substance: IMATINIB MESYLATE
     Indication: BLAST CRISIS IN MYELOGENOUS LEUKAEMIA

REACTIONS (1)
  - Electrocardiogram QT prolonged [Unknown]

NARRATIVE: CASE EVENT DATE: 20130811
